FAERS Safety Report 13075498 (Version 1)
Quarter: 2016Q4

REPORT INFORMATION
  Report Type: Spontaneous
  Country: US (occurrence: US)
  Receive Date: 20161229
  Receipt Date: 20161229
  Transmission Date: 20170207
  Serious: Yes (Life-Threatening, Disabling, Other)
  Sender: FDA-Public Use
  Company Number: None

PATIENT
  Age: 61 Year
  Sex: Female
  Weight: 73.09 kg

DRUGS (1)
  1. QUETIAPINE ER [Suspect]
     Active Substance: QUETIAPINE
     Dosage: II GHS

REACTIONS (3)
  - Headache [None]
  - Cerebral disorder [None]
  - Product substitution issue [None]

NARRATIVE: CASE EVENT DATE: 20161122
